FAERS Safety Report 9118746 (Version 1)
Quarter: 2013Q1

REPORT INFORMATION
  Report Type: Spontaneous
  Country: US (occurrence: None)
  Receive Date: 20130221
  Receipt Date: 20130221
  Transmission Date: 20140127
  Serious: Yes (Other)
  Sender: FDA-Public Use
  Company Number: None

PATIENT
  Sex: 0

DRUGS (1)
  1. STIVARGA [Suspect]
     Indication: COLORECTAL CANCER
     Route: 048
     Dates: start: 20130131

REACTIONS (5)
  - Stomatitis [None]
  - Dysphonia [None]
  - Palpitations [None]
  - Asthenia [None]
  - Thinking abnormal [None]
